FAERS Safety Report 9262749 (Version 1)
Quarter: 2013Q2

REPORT INFORMATION
  Report Type: Spontaneous
  Country: US (occurrence: US)
  Receive Date: 20130430
  Receipt Date: 20130430
  Transmission Date: 20140414
  Serious: No
  Sender: FDA-Public Use
  Company Number: US-009507513-1304USA016718

PATIENT
  Sex: Female

DRUGS (3)
  1. VICTRELIS [Suspect]
     Indication: HEPATITIS C
     Dosage: UNK
     Route: 048
     Dates: end: 20130424
  2. VICTRELIS [Suspect]
     Dosage: UNK
     Route: 048
  3. PRINIVIL [Concomitant]
     Dosage: UNK

REACTIONS (1)
  - Candida infection [Recovered/Resolved]
